FAERS Safety Report 8033421-9 (Version None)
Quarter: 2012Q1

REPORT INFORMATION
  Report Type: 
  Country: None (occurrence: None)
  Receive Date: 20120110
  Receipt Date: 20120105
  Transmission Date: 20120608
  Serious: Yes (Death, Hospitalization)
  Sender: FDA-Public Use
  Company Number: PHHY2011JP81358

PATIENT
  Age: 69 Year
  Sex: Male

DRUGS (13)
  1. CALBLOCK [Suspect]
     Dosage: 16 MG, DAILY
     Route: 048
     Dates: start: 20110911, end: 20110914
  2. LIPITOR [Concomitant]
     Dosage: UNK
     Route: 048
  3. RASILEZ [Suspect]
     Dosage: 150 MG, UNK
     Route: 048
     Dates: start: 20110926, end: 20111011
  4. ASPIRIN [Concomitant]
     Dosage: UNK
     Route: 048
  5. BAKTAR [Concomitant]
     Dosage: UNK
     Route: 048
  6. FOSAMAX [Concomitant]
     Dosage: 5 MG, UNK
     Route: 048
  7. ENALAPRIL MALEATE [Concomitant]
     Dosage: UNK
     Route: 048
  8. ALDACTONE [Concomitant]
     Dosage: UNK
     Route: 048
  9. RASILEZ [Suspect]
     Indication: HYPERTENSION
     Dosage: 150 MG, DAILY
     Route: 048
     Dates: start: 20110901, end: 20110915
  10. LANSOPRAZOLE [Suspect]
     Dosage: 30 MG, DAILY
     Route: 048
     Dates: start: 20110907, end: 20110914
  11. PLAVIX [Suspect]
     Dosage: 75 MG, DAILY
     Dates: start: 20110831, end: 20110909
  12. BISOPROLOL FUMARATE [Concomitant]
     Dosage: UNK
     Route: 048
  13. ZANTAC [Concomitant]
     Dosage: UNK
     Route: 048

REACTIONS (1)
  - INTERSTITIAL LUNG DISEASE [None]
